FAERS Safety Report 5856940-X (Version None)
Quarter: 2008Q3

REPORT INFORMATION
  Report Type: 
  Country: None (occurrence: None)
  Receive Date: 20080822
  Receipt Date: 20080822
  Transmission Date: 20090109
  Serious: No
  Sender: FDA-Public Use
  Company Number: None

PATIENT
  Sex: Male
  Weight: 72.1219 kg

DRUGS (2)
  1. VERELAN [Suspect]
     Indication: ANGINA PECTORIS
     Dosage: 180 MG QD PO
     Route: 048
     Dates: start: 20020101
  2. VERELAN [Suspect]
     Indication: HYPERTENSION
     Dosage: 180 MG QD PO
     Route: 048
     Dates: start: 20020101

REACTIONS (3)
  - ASTHENIA [None]
  - HEART RATE IRREGULAR [None]
  - PALPITATIONS [None]
